FAERS Safety Report 24948357 (Version 1)
Quarter: 2025Q1

REPORT INFORMATION
  Report Type: Other
  Country: SA (occurrence: SA)
  Receive Date: 20250210
  Receipt Date: 20250210
  Transmission Date: 20250408
  Serious: Yes (Other)
  Sender: ADAPTIS PHARMA INDIA
  Company Number: SA-Adaptis Pharma Private Limited-2170855

PATIENT
  Age: 77 Year
  Sex: Female

DRUGS (1)
  1. LEVETIRACETAM [Suspect]
     Active Substance: LEVETIRACETAM
     Indication: Seizure prophylaxis

REACTIONS (1)
  - Parkinson^s disease [Recovered/Resolved]
